FAERS Safety Report 4559631-0 (Version None)
Quarter: 2005Q1

REPORT INFORMATION
  Report Type: 
  Country: None (occurrence: None)
  Receive Date: 20050124
  Receipt Date: 20031003
  Transmission Date: 20050727
  Serious: Yes (Hospitalization)
  Sender: FDA-Public Use
  Company Number: BE-ABBOTT-03P-013-0235802-01

PATIENT
  Sex: Female
  Weight: 63 kg

DRUGS (24)
  1. HUMIRA [Suspect]
     Indication: RHEUMATOID ARTHRITIS
     Dosage: 40 MILLIGRAM
     Route: 058
     Dates: start: 20030502, end: 20030829
  2. HUMIRA [Suspect]
     Dates: start: 20030620, end: 20031003
  3. MELOXICAM [Concomitant]
     Indication: RHEUMATOID ARTHRITIS
     Dates: start: 19971205, end: 20030501
  4. MELOXICAM [Concomitant]
     Route: 048
     Dates: start: 20030612
  5. VALPROATE SODIUM [Concomitant]
     Indication: MENINGIOMA
     Route: 048
     Dates: start: 19941101
  6. CIPROFIBRATE [Concomitant]
     Indication: HYPERCHOLESTEROLAEMIA
     Route: 048
     Dates: start: 19990101, end: 20030501
  7. CALCIUM GLUCONATE [Concomitant]
     Indication: OSTEOPOROSIS PROPHYLAXIS
     Route: 048
     Dates: start: 19890101, end: 20030501
  8. LISINOPRIL [Concomitant]
     Indication: HYPERTENSION
     Route: 048
     Dates: start: 20030501
  9. INDAPAMIDE [Concomitant]
     Indication: HYPERTENSION
     Route: 048
     Dates: start: 20030501, end: 20030718
  10. INDAPAMIDE [Concomitant]
     Indication: OEDEMA PERIPHERAL
  11. NEO CUTIGENOL [Concomitant]
     Indication: ERYSIPELAS
     Route: 061
     Dates: start: 20030601, end: 20030620
  12. ACETAMINOPHEN [Concomitant]
     Indication: ARTHRITIS
     Route: 048
     Dates: start: 20030805
  13. ACETAMINOPHEN [Concomitant]
     Route: 048
     Dates: start: 20030805
  14. KINESITHERAPY [Concomitant]
     Indication: OEDEMA PERIPHERAL
     Dates: start: 20030905
  15. KINESITHERAPY [Concomitant]
     Dates: start: 20030905
  16. POVIDONE IODINE [Concomitant]
     Indication: ERYSIPELAS
     Route: 061
     Dates: start: 20030501, end: 20030531
  17. POVIDONE IODINE [Concomitant]
     Indication: WOUND
     Route: 061
     Dates: start: 20030601, end: 20030620
  18. BUMETANIDE [Concomitant]
     Indication: OEDEMA PERIPHERAL
     Route: 048
     Dates: start: 20030718, end: 20030719
  19. BUMETANIDE [Concomitant]
     Route: 048
     Dates: start: 20030720, end: 20030905
  20. DONEPEZIL HYDROCHLORIDE [Concomitant]
     Indication: DEMENTIA ALZHEIMER'S TYPE
     Route: 048
     Dates: start: 20031002, end: 20031020
  21. DONEPEZIL HYDROCHLORIDE [Concomitant]
     Route: 048
     Dates: start: 20031021
  22. AMLODIPINE BESYLATE [Concomitant]
     Indication: HYPERTENSION
     Route: 048
     Dates: start: 20031021
  23. ^DEURE^ [Concomitant]
     Indication: OSTEOPOROSIS
     Dosage: 25,000 U/15 DAYS
     Route: 048
     Dates: start: 20031021
  24. FOLIC ACID [Concomitant]
     Indication: VITAMIN SUPPLEMENTATION
     Route: 048
     Dates: start: 20031021

REACTIONS (5)
  - CARDIAC FAILURE CONGESTIVE [None]
  - DEMENTIA [None]
  - DEMENTIA ALZHEIMER'S TYPE [None]
  - DEMYELINATION [None]
  - NERVOUS SYSTEM DISORDER [None]
